FAERS Safety Report 5161853-5 (Version None)
Quarter: 2006Q4

REPORT INFORMATION
  Report Type: 
  Country: None (occurrence: None)
  Receive Date: 20061130
  Receipt Date: 20060918
  Transmission Date: 20070319
  Serious: No
  Sender: FDA-Public Use
  Company Number: US-GLAXOSMITHKLINE-A0622650A

PATIENT
  Age: 41 Year
  Sex: Female

DRUGS (4)
  1. WELLBUTRIN XL [Suspect]
     Indication: DEPRESSION
     Dosage: 150MG PER DAY
     Route: 048
     Dates: start: 20060802, end: 20060911
  2. EFFEXOR XR [Concomitant]
     Indication: DEPRESSION
     Dosage: 300MG PER DAY
     Route: 048
     Dates: start: 20040106
  3. PROVIGIL [Concomitant]
     Indication: DEPRESSION
     Dosage: 200MG PER DAY
     Route: 048
     Dates: start: 20060525
  4. ALPRAZOLAM [Concomitant]
     Indication: PANIC ATTACK
     Dosage: .5MG VARIABLE DOSE
     Route: 048
     Dates: start: 20000101

REACTIONS (3)
  - BLEPHARITIS [None]
  - DRY EYE [None]
  - SKIN DISORDER [None]
